FAERS Safety Report 7178218-7 (Version None)
Quarter: 2010Q4

REPORT INFORMATION
  Report Type: 
  Country: None (occurrence: None)
  Receive Date: 20101220
  Receipt Date: 20101207
  Transmission Date: 20110411
  Serious: Yes (Hospitalization)
  Sender: FDA-Public Use
  Company Number: PHHY2010US83309

PATIENT
  Sex: Male
  Weight: 85 kg

DRUGS (3)
  1. EXJADE [Suspect]
     Indication: IRON OVERLOAD
     Dosage: 1000 MG, QD
     Route: 048
     Dates: start: 20100325
  2. EXJADE [Suspect]
     Dosage: 1700 MG, QD
     Route: 048
     Dates: start: 20100404
  3. EXJADE [Suspect]
     Route: 048

REACTIONS (2)
  - ANAEMIA [None]
  - PRESYNCOPE [None]
